FAERS Safety Report 4806023-2 (Version None)
Quarter: 2005Q4

REPORT INFORMATION
  Report Type: 
  Country: None (occurrence: None)
  Receive Date: 20051019
  Receipt Date: 20051005
  Transmission Date: 20060501
  Serious: Yes (Other)
  Sender: FDA-Public Use
  Company Number: USA0510109988

PATIENT
  Age: 40 Year
  Sex: Female

DRUGS (2)
  1. HUMULIN N [Suspect]
     Indication: DIABETES MELLITUS
     Dosage: 54 U DAY
     Dates: start: 19900101
  2. HUMALOG [Suspect]
     Indication: DIABETES MELLITUS
     Dosage: 20 U DAY
     Dates: start: 19990101

REACTIONS (7)
  - ABNORMAL SENSATION IN EYE [None]
  - BLINDNESS UNILATERAL [None]
  - EYE HAEMORRHAGE [None]
  - IMPAIRED DRIVING ABILITY [None]
  - READING DISORDER [None]
  - THROMBOSIS [None]
  - VISUAL DISTURBANCE [None]
